FAERS Safety Report 15110317 (Version 3)
Quarter: 2018Q4

REPORT INFORMATION
  Report Type: Report from Study
  Country: None (occurrence: US)
  Receive Date: 20180705
  Receipt Date: 20181015
  Transmission Date: 20190204
  Serious: Yes (Other)
  Sender: FDA-Public Use
  Company Number: US-ABBVIE-18K-163-2367418-00

PATIENT
  Sex: Female

DRUGS (1)
  1. HUMIRA [Suspect]
     Active Substance: ADALIMUMAB
     Indication: RHEUMATOID ARTHRITIS
     Route: 058
     Dates: start: 20170914

REACTIONS (7)
  - Joint stiffness [Unknown]
  - Trigger finger [Unknown]
  - Swelling [Unknown]
  - Fatigue [Unknown]
  - Therapeutic response decreased [Unknown]
  - Inflammation [Unknown]
  - Arthralgia [Unknown]
